FAERS Safety Report 6241225-2 (Version None)
Quarter: 2009Q2

REPORT INFORMATION
  Report Type: 
  Country: None (occurrence: None)
  Receive Date: 20090619
  Receipt Date: 20090619
  Transmission Date: 20091009
  Serious: Yes (Hospitalization)
  Sender: FDA-Public Use
  Company Number: None

PATIENT
  Age: 48 Year
  Sex: Female

DRUGS (2)
  1. LAMIVUDINE AND ZIDOVUDINE [Suspect]
     Indication: HIV INFECTION
     Dosage: LAMIVUDINE-ZIDOVUDINE 1 TAB TWICE DAILY PO
     Route: 048
  2. LOPINAVIR AND RITONAVIR [Suspect]
     Indication: HIV INFECTION
     Dosage: LOPINAVIR-RITONAVIR 2  TABS TWICE DAILY PO
     Route: 048

REACTIONS (8)
  - ENTEROCOCCAL INFECTION [None]
  - HAEMODIALYSIS [None]
  - MACROCYTOSIS [None]
  - PANCYTOPENIA [None]
  - PYELONEPHRITIS [None]
  - RENAL ABSCESS [None]
  - RENAL FAILURE CHRONIC [None]
  - URINARY TRACT OBSTRUCTION [None]
